FAERS Safety Report 25729472 (Version 1)
Quarter: 2025Q3

REPORT INFORMATION
  Report Type: Spontaneous
  Country: TR (occurrence: TR)
  Receive Date: 20250827
  Receipt Date: 20250827
  Transmission Date: 20251021
  Serious: Yes (Death, Hospitalization, Other)
  Sender: CHEPLAPHARM
  Company Number: TR-BMED-L-2025-0016

PATIENT
  Age: 61 Year
  Sex: Female

DRUGS (10)
  1. CLONAZEPAM [Suspect]
     Active Substance: CLONAZEPAM
     Indication: Stiff person syndrome
     Dosage: DAILY DOSE: 2 MILLIGRAM
  2. CLONAZEPAM [Suspect]
     Active Substance: CLONAZEPAM
     Indication: Anxiety
     Dosage: DAILY DOSE: 2 MILLIGRAM
  3. DIAZEPAM [Suspect]
     Active Substance: DIAZEPAM
     Indication: Stiff person syndrome
     Dosage: DAILY DOSE: 20 MILLIGRAM
  4. DIAZEPAM [Suspect]
     Active Substance: DIAZEPAM
     Indication: Anxiety
     Dosage: DAILY DOSE: 20 MILLIGRAM
  5. DIAZEPAM [Suspect]
     Active Substance: DIAZEPAM
     Indication: Stiff person syndrome
     Dosage: GRADUALLY INCREASED UP TO A TOTAL OF 65 MG/DAY?DAILY DOSE: 65 MILLIGRAM
  6. DIAZEPAM [Suspect]
     Active Substance: DIAZEPAM
     Indication: Anxiety
     Dosage: GRADUALLY INCREASED UP TO A TOTAL OF 65 MG/DAY?DAILY DOSE: 65 MILLIGRAM
  7. BACLOFEN [Suspect]
     Active Substance: BACLOFEN
     Indication: Anxiety
     Dosage: DAILY DOSE: 30 MILLIGRAM
  8. BACLOFEN [Suspect]
     Active Substance: BACLOFEN
     Indication: Stiff person syndrome
     Dosage: DAILY DOSE: 30 MILLIGRAM
  9. HUMAN IMMUNOGLOBULIN G [Suspect]
     Active Substance: HUMAN IMMUNOGLOBULIN G
     Indication: Anxiety
     Route: 042
  10. HUMAN IMMUNOGLOBULIN G [Suspect]
     Active Substance: HUMAN IMMUNOGLOBULIN G
     Indication: Stiff person syndrome
     Route: 042

REACTIONS (5)
  - Pulmonary embolism [Fatal]
  - Respiratory distress [Unknown]
  - COVID-19 pneumonia [Unknown]
  - General physical health deterioration [Unknown]
  - Off label use [Recovered/Resolved]
